FAERS Safety Report 24180675 (Version 3)
Quarter: 2025Q2

REPORT INFORMATION
  Report Type: Report from Study
  Country: CA (occurrence: CA)
  Receive Date: 20240806
  Receipt Date: 20250603
  Transmission Date: 20250716
  Serious: Yes (Other)
  Sender: SANDOZ
  Company Number: CA-SANDOZ-SDZ2023CA006709

PATIENT
  Age: 83 Year
  Sex: Female

DRUGS (1)
  1. HYRIMOZ [Suspect]
     Active Substance: ADALIMUMAB-ADAZ
     Indication: Rheumatoid arthritis
     Dosage: 40 MG;BIWEEKLY
     Route: 058
     Dates: start: 20220422

REACTIONS (5)
  - Gastrointestinal disorder [Unknown]
  - General physical health deterioration [Unknown]
  - Pain [Unknown]
  - Movement disorder [Unknown]
  - Stress [Unknown]

NARRATIVE: CASE EVENT DATE: 20230718
